FAERS Safety Report 9906798 (Version 1)
Quarter: 2014Q1

REPORT INFORMATION
  Report Type: Spontaneous
  Country: US (occurrence: US)
  Receive Date: 20140218
  Receipt Date: 20140218
  Transmission Date: 20141002
  Serious: Yes (Hospitalization)
  Sender: FDA-Public Use
  Company Number: US-PFIZER INC-2014042550

PATIENT
  Age: 64 Year
  Sex: Male
  Weight: 77.1 kg

DRUGS (1)
  1. SUTENT [Suspect]
     Indication: RENAL CANCER
     Dosage: 50 MG, UNK
     Dates: start: 201211, end: 2012

REACTIONS (4)
  - Coma [Recovered/Resolved with Sequelae]
  - Posterior reversible encephalopathy syndrome [Unknown]
  - Weight decreased [Unknown]
  - Renal disorder [Unknown]
